FAERS Safety Report 9908364 (Version 1)
Quarter: 2014Q1

REPORT INFORMATION
  Report Type: Spontaneous
  Country: US (occurrence: None)
  Receive Date: 20140214
  Receipt Date: 20140214
  Transmission Date: 20141002
  Serious: Yes (Hospitalization)
  Sender: FDA-Public Use
  Company Number: None

PATIENT
  Age: 79 Year
  Sex: Female
  Weight: 43 kg

DRUGS (15)
  1. LOVENOX [Suspect]
     Indication: DEEP VEIN THROMBOSIS
     Route: 058
  2. LOVENOX [Suspect]
     Indication: PULMONARY EMBOLISM
     Route: 058
  3. NAMENDA [Concomitant]
  4. ULTRAM [Concomitant]
  5. ZOFRAN [Concomitant]
  6. NORCO [Concomitant]
  7. DURAGESIC [Concomitant]
  8. LEVAQUIN [Concomitant]
  9. APAP [Concomitant]
  10. ELDETRONIC [Concomitant]
  11. ZINC [Concomitant]
  12. OMEPRAZOLE [Concomitant]
  13. LIDODERM [Concomitant]
  14. MIRTAZAPINE [Concomitant]
  15. VIT C [Concomitant]

REACTIONS (3)
  - Lower gastrointestinal haemorrhage [None]
  - Diverticulum [None]
  - Haemorrhagic anaemia [None]
